FAERS Safety Report 10671688 (Version 2)
Quarter: 2015Q1

REPORT INFORMATION
  Report Type: Spontaneous
  Country: US (occurrence: US)
  Receive Date: 20141223
  Receipt Date: 20150122
  Transmission Date: 20150720
  Serious: Yes (Other)
  Sender: FDA-Public Use
  Company Number: US-PFIZER INC-2014340322

PATIENT
  Age: 37 Year
  Sex: Female

DRUGS (1)
  1. CHAPSTICK LIP BALM [Suspect]
     Active Substance: ISOPROPYL MYRISTATE
     Indication: CHAPPED LIPS
     Dosage: UNK, (3-4 TIMES A DAY)
     Dates: start: 20141201, end: 20141217

REACTIONS (3)
  - Coeliac disease [Unknown]
  - Reaction to drug excipients [Unknown]
  - Lip exfoliation [Unknown]
